FAERS Safety Report 5628666-9 (Version None)
Quarter: 2008Q1

REPORT INFORMATION
  Report Type: 
  Country: None (occurrence: None)
  Receive Date: 20080214
  Receipt Date: 20080214
  Transmission Date: 20080703
  Serious: Yes (Other)
  Sender: FDA-Public Use
  Company Number: None

PATIENT
  Age: 16 Year
  Sex: Female

DRUGS (1)
  1. LEVAQUIN [Suspect]
     Indication: APPENDICITIS
     Dosage: 500 MG IV
     Route: 042

REACTIONS (1)
  - ANAPHYLACTIC REACTION [None]
